FAERS Safety Report 7126316-6 (Version None)
Quarter: 2010Q4

REPORT INFORMATION
  Report Type: 
  Country: None (occurrence: None)
  Receive Date: 20101129
  Receipt Date: 20100318
  Transmission Date: 20110411
  Serious: No
  Sender: FDA-Public Use
  Company Number: A0851586A

PATIENT

DRUGS (1)
  1. DIGOXIN [Suspect]
     Route: 065

REACTIONS (1)
  - ADVERSE EVENT [None]
